FAERS Safety Report 5664112-7 (Version None)
Quarter: 2008Q1

REPORT INFORMATION
  Report Type: 
  Country: None (occurrence: None)
  Receive Date: 20080314
  Receipt Date: 20080310
  Transmission Date: 20080703
  Serious: Yes (Hospitalization)
  Sender: FDA-Public Use
  Company Number: GB-TEVA-167948ISR

PATIENT
  Age: 13 Year
  Sex: Female

DRUGS (5)
  1. HYDROCORTISONE [Suspect]
     Indication: DRUG USE FOR UNKNOWN INDICATION
  2. MESALAMINE [Suspect]
  3. METRONIDAZOLE HCL [Suspect]
     Indication: DRUG USE FOR UNKNOWN INDICATION
  4. DICLOFENAC [Suspect]
     Indication: ANALGESIA
     Route: 054
  5. CEFOTAXIME SODIUM [Suspect]

REACTIONS (1)
  - RENAL FAILURE ACUTE [None]
